FAERS Safety Report 7355888-1 (Version None)
Quarter: 2011Q1

REPORT INFORMATION
  Report Type: 
  Country: None (occurrence: None)
  Receive Date: 20110311
  Receipt Date: 20110311
  Transmission Date: 20110831
  Serious: No
  Sender: FDA-Public Use
  Company Number: None

PATIENT

DRUGS (3)
  1. NIASPAN [Suspect]
     Dates: start: 20080101, end: 20080604
  2. LEVOXYL [Concomitant]
  3. ASPIRIN [Concomitant]

REACTIONS (12)
  - NAUSEA [None]
  - PYREXIA [None]
  - ABDOMINAL PAIN UPPER [None]
  - VOMITING [None]
  - HEPATIC STEATOSIS [None]
  - ACUTE HEPATIC FAILURE [None]
  - LIVER DISORDER [None]
  - CHILLS [None]
  - ENCEPHALOPATHY [None]
  - COAGULOPATHY [None]
  - INTERNATIONAL NORMALISED RATIO INCREASED [None]
  - HEPATIC CYST [None]
